FAERS Safety Report 12116688 (Version 1)
Quarter: 2016Q1

REPORT INFORMATION
  Report Type: Spontaneous
  Country: US (occurrence: None)
  Receive Date: 20160225
  Receipt Date: 20160225
  Transmission Date: 20160526
  Serious: Yes (Death, Other)
  Sender: FDA-Public Use
  Company Number: US-MDT-ADR-2015-02338

PATIENT
  Age: 49 Year
  Sex: Male

DRUGS (1)
  1. BACLOFEN INTRATHECAL 2000.0 MCG/ML [Suspect]
     Active Substance: BACLOFEN
     Indication: MUSCLE SPASTICITY
     Dosage: 854 MCG/DAY

REACTIONS (2)
  - Apnoea [None]
  - Porencephaly [None]
